FAERS Safety Report 4345141-2 (Version None)
Quarter: 2004Q2

REPORT INFORMATION
  Report Type: 
  Country: None (occurrence: None)
  Receive Date: 20040423
  Receipt Date: 20020516
  Transmission Date: 20050107
  Serious: Yes (Hospitalization)
  Sender: FDA-Public Use
  Company Number: US-MERCK-0205USA02144

PATIENT
  Age: 73 Year
  Sex: Female
  Weight: 53 kg

DRUGS (10)
  1. ELAVIL [Concomitant]
     Indication: SLEEP DISORDER THERAPY
     Route: 065
  2. PREMARIN [Concomitant]
     Route: 065
     Dates: start: 19600201, end: 20010215
  3. GLUCOSAMINE [Concomitant]
     Route: 065
  4. HYDRODIURIL [Concomitant]
     Indication: POLYURIA
     Route: 065
  5. LEVOXYL [Concomitant]
     Indication: THYROID DISORDER
     Route: 065
  6. LEVOXYL [Concomitant]
     Route: 065
  7. IMODIUM [Concomitant]
     Route: 065
  8. VIOXX [Suspect]
     Indication: ARTHROPATHY
     Route: 048
     Dates: start: 20000101
  9. VIOXX [Suspect]
     Route: 048
     Dates: start: 20000101, end: 20000806
  10. VITAMINS (UNSPECIFIED) [Concomitant]
     Route: 065

REACTIONS (6)
  - ASEPTIC NECROSIS BONE [None]
  - BACTERIA URINE IDENTIFIED [None]
  - CEREBROVASCULAR ACCIDENT [None]
  - HAEMORRHAGIC STROKE [None]
  - HYPERTENSION [None]
  - LOCALISED OSTEOARTHRITIS [None]
